FAERS Safety Report 21511089 (Version 2)
Quarter: 2023Q1

REPORT INFORMATION
  Report Type: Spontaneous
  Country: JP (occurrence: JP)
  Receive Date: 20221027
  Receipt Date: 20230217
  Transmission Date: 20230418
  Serious: Yes (Life-Threatening, Hospitalization)
  Sender: FDA-Public Use
  Company Number: JP-ABBVIE-4176128

PATIENT
  Age: 54 Year
  Sex: Female
  Weight: 47 kg

DRUGS (7)
  1. RINVOQ [Suspect]
     Active Substance: UPADACITINIB
     Indication: Rheumatoid arthritis
     Dosage: 15 MILLIGRAM
     Route: 048
     Dates: start: 20210628, end: 20221001
  2. NAPROXEN [Concomitant]
     Active Substance: NAPROXEN
     Indication: Rheumatoid arthritis
     Dosage: TIME INTERVAL: 0.33333333 DAYS: 600 MILLIGRAM
     Route: 048
  3. RHEUMATREX [Suspect]
     Active Substance: METHOTREXATE SODIUM
     Indication: Rheumatoid arthritis
     Dosage: 10 MG/WEEK (TUE: 4 MG FOR 2 TIMES, WED: 2 MG)
     Route: 048
     Dates: start: 20170614, end: 20221001
  4. PROGRAF [Suspect]
     Active Substance: TACROLIMUS
     Indication: Rheumatoid arthritis
     Dosage: 2 MILLIGRAM
     Route: 048
     Dates: start: 20210215, end: 20221001
  5. SODIUM FERROUS CITRATE [Concomitant]
     Active Substance: SODIUM FERROUS CITRATE
     Indication: Anaemia
     Dosage: 50 MILLIGRAM
     Route: 048
  6. TRAMADOL HYDROCHLORIDE AND ACETAMINOPHEN [Concomitant]
     Active Substance: ACETAMINOPHEN\TRAMADOL HYDROCHLORIDE
     Indication: Rheumatoid arthritis
     Dosage: 4 TABLET
     Route: 048
  7. FOLIC ACID [Concomitant]
     Active Substance: FOLIC ACID
     Indication: Rheumatoid arthritis
     Route: 048
     Dates: start: 20170614, end: 20221001

REACTIONS (2)
  - Pneumocystis jirovecii pneumonia [Recovered/Resolved]
  - Cytomegalovirus viraemia [Recovered/Resolved]

NARRATIVE: CASE EVENT DATE: 20220917
